FAERS Safety Report 18127246 (Version 1)
Quarter: 2020Q3

REPORT INFORMATION
  Report Type: Spontaneous
  Country: US (occurrence: US)
  Receive Date: 20200810
  Receipt Date: 20200810
  Transmission Date: 20201103
  Serious: No
  Sender: FDA-Public Use
  Company Number: US-TEVA-2020-US-1808506

PATIENT
  Age: 51 Year
  Sex: Female
  Weight: 76.27 kg

DRUGS (14)
  1. PROVIGIL [Suspect]
     Active Substance: MODAFINIL
     Indication: NARCOLEPSY
     Route: 065
  2. GEODON [Concomitant]
     Active Substance: ZIPRASIDONE HYDROCHLORIDE\ZIPRASIDONE MESYLATE
  3. XANAX PRN [Concomitant]
  4. SINEMET [Concomitant]
     Active Substance: CARBIDOPA\LEVODOPA
  5. PROCHLORPERAZINE. [Concomitant]
     Active Substance: PROCHLORPERAZINE
  6. TROKENDI XR [Concomitant]
     Active Substance: TOPIRAMATE
  7. NARATRIPTAN [Concomitant]
     Active Substance: NARATRIPTAN HYDROCHLORIDE
  8. PROGESTERONE ATROPHY [Concomitant]
  9. ESTROGEN [Concomitant]
     Active Substance: ESTROGENS
  10. AJOVY [Suspect]
     Active Substance: FREMANEZUMAB-VFRM
     Dates: start: 20200623
  11. KLONOPIN [Concomitant]
     Active Substance: CLONAZEPAM
  12. VIGIL [Concomitant]
  13. TESTOSTERONE. [Concomitant]
     Active Substance: TESTOSTERONE
  14. DHEA [Concomitant]
     Active Substance: PRASTERONE

REACTIONS (16)
  - Depression [Recovered/Resolved]
  - Insomnia [Recovered/Resolved]
  - Intentional dose omission [Unknown]
  - Fear [Unknown]
  - Hostility [Recovered/Resolved]
  - Migraine [Recovered/Resolved]
  - Irritability [Recovered/Resolved]
  - Neck pain [Not Recovered/Not Resolved]
  - Mood swings [Recovered/Resolved]
  - Nightmare [Recovered/Resolved]
  - Fatigue [Recovered/Resolved]
  - Motor dysfunction [Recovered/Resolved]
  - Homicidal ideation [Recovered/Resolved]
  - Crying [Recovered/Resolved]
  - Drug ineffective [Unknown]
  - Headache [Not Recovered/Not Resolved]

NARRATIVE: CASE EVENT DATE: 20200623
